FAERS Safety Report 25897718 (Version 1)
Quarter: 2025Q4

REPORT INFORMATION
  Report Type: Spontaneous
  Country: US (occurrence: US)
  Receive Date: 20251008
  Receipt Date: 20251008
  Transmission Date: 20260118
  Serious: No
  Sender: Kenvue
  Company Number: US-KENVUE-20250810656

PATIENT
  Sex: Male

DRUGS (1)
  1. ZYRTEC [Suspect]
     Active Substance: CETIRIZINE HYDROCHLORIDE
     Indication: Urticaria
     Dosage: 2-4X A DAY
     Route: 065

REACTIONS (4)
  - Brain fog [Unknown]
  - Somnolence [Unknown]
  - Overdose [Unknown]
  - Inappropriate schedule of product administration [Unknown]
